FAERS Safety Report 8962315 (Version 1)
Quarter: 2012Q4

REPORT INFORMATION
  Report Type: Spontaneous
  Country: IT (occurrence: None)
  Receive Date: 20121203
  Receipt Date: 20121203
  Transmission Date: 20130627
  Serious: Yes (Death)
  Sender: FDA-Public Use
  Company Number: DSA_61126_2012

PATIENT

DRUGS (7)
  1. FLUOROURACIL (FLUOROURACIL) [Suspect]
     Indication: METASTATIC GASTRIC CANCER
     Route: 042
  2. DOCETAXEL [Suspect]
     Indication: METASTATIC GASTRIC CANCER
     Route: 042
  3. CISPLATIN [Suspect]
     Indication: METASTATIC GASTRIC CANCER
  4. LEUCOVORIN [Suspect]
     Indication: METASTATIC GASTRIC CANCER
     Route: 042
  5. ANTIMETICS AND ANTINAUSEANTS [Concomitant]
  6. DEXAMETHASONE [Concomitant]
  7. NORMAL SALINE [Concomitant]

REACTIONS (2)
  - Febrile neutropenia [None]
  - Diarrhoea [None]
